FAERS Safety Report 7021131-6 (Version None)
Quarter: 2010Q3

REPORT INFORMATION
  Report Type: 
  Country: None (occurrence: None)
  Receive Date: 20100929
  Receipt Date: 20100922
  Transmission Date: 20110219
  Serious: Yes (Life-Threatening, Hospitalization, Other)
  Sender: FDA-Public Use
  Company Number: US-PFIZER INC-2010103153

PATIENT
  Sex: Female
  Weight: 57.152 kg

DRUGS (7)
  1. SUTENT [Suspect]
     Indication: METASTATIC RENAL CELL CARCINOMA
     Dosage: 50 MG, 1X/DAY, 2 WEEKS ON/1 WEEKS OFF
     Route: 048
     Dates: start: 20100413, end: 20100627
  2. LEVOTHYROXINE [Concomitant]
     Dosage: 50 UG, 1X/DAY
  3. NIFEDIPINE [Concomitant]
     Dosage: 60 MG, DAILY
  4. IRON SULFATETHIAMIN COMPOUND TAB [Concomitant]
     Dosage: UNK
  5. COMPAZINE [Concomitant]
     Dosage: UNK
  6. LOTREL [Concomitant]
     Dosage: 5/20 MG, DAILY
  7. AMBIEN [Concomitant]
     Dosage: 5 MG, DAILY

REACTIONS (5)
  - COLITIS [None]
  - DEHYDRATION [None]
  - PANCREATITIS [None]
  - PANCYTOPENIA [None]
  - RENAL FAILURE ACUTE [None]
